FAERS Safety Report 11988299 (Version 2)
Quarter: 2016Q2

REPORT INFORMATION
  Report Type: Spontaneous
  Country: US (occurrence: US)
  Receive Date: 20160202
  Receipt Date: 20160606
  Transmission Date: 20160815
  Serious: No
  Sender: FDA-Public Use
  Company Number: US-PFIZER INC-2016020610

PATIENT
  Age: 52 Year
  Sex: Female

DRUGS (4)
  1. GABAPENTIN. [Suspect]
     Active Substance: GABAPENTIN
     Dosage: 100 MG, 3X/DAY
     Dates: start: 20151128
  2. GABAPENTIN. [Suspect]
     Active Substance: GABAPENTIN
     Indication: BURNING SENSATION
     Dosage: 300 MG, 3X/DAY
     Dates: start: 201512, end: 20151228
  3. GABAPENTIN. [Suspect]
     Active Substance: GABAPENTIN
     Indication: PAIN IN EXTREMITY
     Dosage: 100 MG, UNK
     Dates: start: 20151125, end: 201512
  4. MINOCYCLINE [Concomitant]
     Active Substance: MINOCYCLINE\MINOCYCLINE HYDROCHLORIDE
     Indication: ACNE
     Dosage: 50 MG, AS NEEDED (1-2 DAYS OF MONTH)
     Route: 048
     Dates: start: 2007

REACTIONS (5)
  - Spondylitis [Unknown]
  - Malaise [Unknown]
  - Drug ineffective for unapproved indication [Not Recovered/Not Resolved]
  - Feeling abnormal [Unknown]
  - Memory impairment [Unknown]

NARRATIVE: CASE EVENT DATE: 20151128
